FAERS Safety Report 7023202-7 (Version None)
Quarter: 2010Q3

REPORT INFORMATION
  Report Type: 
  Country: None (occurrence: None)
  Receive Date: 20100930
  Receipt Date: 20100927
  Transmission Date: 20110219
  Serious: Yes (Death, Other)
  Sender: FDA-Public Use
  Company Number: US-ROCHE-729622

PATIENT

DRUGS (6)
  1. BEVACIZUMAB [Suspect]
     Indication: GENITAL NEOPLASM MALIGNANT FEMALE
     Dosage: DAY 1 OF EACH 21 CYCLE, 5 MG/ KG BY IV OVER 90 MIN
     Route: 042
  2. BEVACIZUMAB [Suspect]
     Route: 042
  3. DOXORUBICIN HCL [Suspect]
     Indication: GENITAL NEOPLASM MALIGNANT FEMALE
     Dosage: DAY 1 OF EACH 21 DAY CYCLE, DOSE: 10 MG/M2 BY IV OVER 3 HOURS
     Route: 042
  4. DOXORUBICIN HCL [Suspect]
     Route: 042
  5. TEMSIROLIMUS [Suspect]
     Indication: GENITAL NEOPLASM MALIGNANT FEMALE
     Dosage: DAY 1, 8 AND 15 DAY CYCLE, 12.5 MG BY IV OVER 30 TO 60 MIN
     Route: 042
  6. TEMSIROLIMUS [Suspect]
     Route: 042

REACTIONS (4)
  - FATIGUE [None]
  - INTESTINAL PERFORATION [None]
  - MUCOSAL INFLAMMATION [None]
  - THROMBOCYTOPENIA [None]
